FAERS Safety Report 10257931 (Version 1)
Quarter: 2014Q2

REPORT INFORMATION
  Report Type: Spontaneous
  Country: US (occurrence: US)
  Receive Date: 20140625
  Receipt Date: 20140625
  Transmission Date: 20141212
  Serious: No
  Sender: FDA-Public Use
  Company Number: US-PFIZER INC-2014170013

PATIENT
  Sex: Female

DRUGS (2)
  1. LYRICA [Suspect]
     Indication: NERVE INJURY
     Dosage: UNK, 2X/DAY
     Dates: start: 2014
  2. LYRICA [Suspect]
     Indication: MUSCLE INJURY
     Dosage: UNK, 3X/DAY
     Dates: start: 20140612

REACTIONS (1)
  - Therapeutic response changed [Unknown]
